FAERS Safety Report 9100563 (Version 5)
Quarter: 2013Q4

REPORT INFORMATION
  Report Type: Spontaneous
  Country: US (occurrence: US)
  Receive Date: 20130215
  Receipt Date: 20131220
  Transmission Date: 20140711
  Serious: Yes (Other)
  Sender: FDA-Public Use
  Company Number: PR-PFIZER INC-2013060087

PATIENT
  Age: 61 Year
  Sex: Female
  Weight: 81.63 kg

DRUGS (6)
  1. LYRICA [Suspect]
     Indication: FIBROMYALGIA
     Dosage: UNK, 2X/DAY
  2. LYRICA [Suspect]
     Indication: BURNING SENSATION
     Dosage: UNK, WEEKLY
  3. LYRICA [Suspect]
     Dosage: 150 MG, 2X/DAY
     Route: 048
     Dates: end: 201312
  4. SPIRONOLACTONE W/HYDROCHLOROTHIAZIDE [Concomitant]
     Indication: HYPERTENSION
     Dosage: 25/25 MG
  5. MOTRIN [Concomitant]
     Indication: PAIN
     Dosage: UNK
  6. MOTRIN [Concomitant]
     Indication: HYPOKINESIA

REACTIONS (6)
  - Off label use [Unknown]
  - Cerebrovascular accident [Unknown]
  - Musculoskeletal disorder [Unknown]
  - Paraesthesia [Unknown]
  - Malaise [Unknown]
  - Pain [Unknown]
